FAERS Safety Report 5150474-6 (Version None)
Quarter: 2006Q4

REPORT INFORMATION
  Report Type: 
  Country: None (occurrence: None)
  Receive Date: 20061109
  Receipt Date: 20061109
  Transmission Date: 20070319
  Serious: Yes (Hospitalization)
  Sender: FDA-Public Use
  Company Number: None

PATIENT
  Sex: Male
  Weight: 65 kg

DRUGS (5)
  1. INTRON A [Suspect]
     Dosage: 370 MU
  2. CLARITIN [Concomitant]
  3. HYDROCHLOROTHIAZIDE [Concomitant]
  4. MECLIZINE [Concomitant]
  5. TYLENOL [Concomitant]

REACTIONS (5)
  - ACTIVITIES OF DAILY LIVING IMPAIRED [None]
  - FATIGUE [None]
  - MEMORY IMPAIRMENT [None]
  - MOTOR DYSFUNCTION [None]
  - PERFORMANCE STATUS DECREASED [None]
